FAERS Safety Report 7801529-6 (Version None)
Quarter: 2011Q4

REPORT INFORMATION
  Report Type: 
  Country: None (occurrence: None)
  Receive Date: 20111007
  Receipt Date: 20110929
  Transmission Date: 20120403
  Serious: Yes (Other)
  Sender: FDA-Public Use
  Company Number: GB-JNJFOC-20110900469

PATIENT
  Sex: Female

DRUGS (2)
  1. INSULIN [Concomitant]
     Indication: DIABETES MELLITUS
     Route: 065
  2. STELARA [Suspect]
     Indication: PRODUCT USED FOR UNKNOWN INDICATION
     Dosage: WEEKS 0 AND 4
     Route: 058

REACTIONS (5)
  - DYSPNOEA [None]
  - FATIGUE [None]
  - DEPRESSION [None]
  - EAR INFECTION [None]
  - UPPER RESPIRATORY TRACT INFECTION [None]
